FAERS Safety Report 4355684-3 (Version None)
Quarter: 2004Q2

REPORT INFORMATION
  Report Type: 
  Country: None (occurrence: None)
  Receive Date: 20040510
  Receipt Date: 20040423
  Transmission Date: 20050107
  Serious: Yes (Hospitalization)
  Sender: FDA-Public Use
  Company Number: US-AMGEN-US074043

PATIENT
  Age: 40 Year
  Sex: Female

DRUGS (2)
  1. ENBREL [Suspect]
     Indication: PSORIASIS
     Route: 058
     Dates: start: 20040415, end: 20040423
  2. CLOBETASOL [Concomitant]
     Route: 061
     Dates: start: 20040402

REACTIONS (6)
  - ARTHRALGIA [None]
  - DISEASE PROGRESSION [None]
  - LUPUS-LIKE SYNDROME [None]
  - OEDEMA PERIPHERAL [None]
  - PSORIASIS [None]
  - PYREXIA [None]
